FAERS Safety Report 20511106 (Version 1)
Quarter: 2022Q1

REPORT INFORMATION
  Report Type: Spontaneous
  Country: US (occurrence: US)
  Receive Date: 20220224
  Receipt Date: 20220224
  Transmission Date: 20220423
  Serious: No
  Sender: FDA-Public Use
  Company Number: US-GLENMARK PHARMACEUTICALS-2021GMK066873

PATIENT

DRUGS (4)
  1. HEATHER [Suspect]
     Active Substance: NORETHINDRONE
     Indication: Dysmenorrhoea
     Dosage: UNK, OD
     Route: 048
     Dates: start: 20210618
  2. HEATHER [Suspect]
     Active Substance: NORETHINDRONE
     Indication: Menstruation irregular
  3. SERTRALINE [Concomitant]
     Active Substance: SERTRALINE HYDROCHLORIDE
     Indication: Anxiety
     Dosage: 100 MILLIGRAM, QD
     Route: 048
     Dates: start: 202012
  4. SERTRALINE [Concomitant]
     Active Substance: SERTRALINE HYDROCHLORIDE
     Indication: Depression

REACTIONS (3)
  - Product use in unapproved indication [Unknown]
  - Product use complaint [Unknown]
  - No adverse event [Unknown]

NARRATIVE: CASE EVENT DATE: 20210618
